FAERS Safety Report 4980721-2 (Version None)
Quarter: 2006Q2

REPORT INFORMATION
  Report Type: 
  Country: None (occurrence: None)
  Receive Date: 20060424
  Receipt Date: 20050829
  Transmission Date: 20061013
  Serious: Yes (Hospitalization)
  Sender: FDA-Public Use
  Company Number: US-MERCK-0508USA04616

PATIENT
  Age: 77 Year
  Sex: Female

DRUGS (7)
  1. VIOXX [Suspect]
     Indication: POLYMYALGIA RHEUMATICA
     Route: 048
     Dates: start: 19990921
  2. VIOXX [Suspect]
     Route: 048
  3. ATENOLOL [Concomitant]
     Route: 065
  4. SULAR [Concomitant]
     Route: 065
  5. FOSAMAX [Concomitant]
     Route: 048
  6. LEVAQUIN [Concomitant]
     Route: 065
  7. CALTRATE [Concomitant]
     Route: 065

REACTIONS (3)
  - CEREBRAL INFARCTION [None]
  - CEREBROVASCULAR ACCIDENT [None]
  - HEMIANOPIA [None]
